FAERS Safety Report 6476650-8 (Version None)
Quarter: 2009Q4

REPORT INFORMATION
  Report Type: 
  Country: None (occurrence: None)
  Receive Date: 20091207
  Receipt Date: 20091202
  Transmission Date: 20100525
  Serious: Yes (Hospitalization, Other)
  Sender: FDA-Public Use
  Company Number: US-ROXANE LABORATORIES, INC.-2009-RO-01209RO

PATIENT
  Age: 45 Year
  Sex: Female

DRUGS (2)
  1. OXCARBAZEPINE [Suspect]
     Indication: PARTIAL SEIZURES
  2. TOPIRAMATE [Suspect]
     Indication: PARTIAL SEIZURES

REACTIONS (3)
  - DRUG INEFFECTIVE [None]
  - HEPATITIS [None]
  - PANCREATIC ENZYMES INCREASED [None]
